FAERS Safety Report 26085592 (Version 2)
Quarter: 2025Q4

REPORT INFORMATION
  Report Type: Spontaneous
  Country: EU (occurrence: EU)
  Receive Date: 20251125
  Receipt Date: 20251223
  Transmission Date: 20260117
  Serious: Yes (Hospitalization)
  Sender: MACLEODS
  Company Number: EU-MACLEODS PHARMA-MAC2025056479

PATIENT

DRUGS (10)
  1. PROPYLTHIOURACIL [Suspect]
     Active Substance: PROPYLTHIOURACIL
     Indication: Graves^ disease
     Dosage: MANUFACTURER: VIATRIS APS
     Route: 065
     Dates: start: 2022
  2. PROPYLTHIOURACIL [Suspect]
     Active Substance: PROPYLTHIOURACIL
     Dosage: MANUFACTURER: VIATRIS APS
     Route: 065
     Dates: start: 202501
  3. PROPYLTHIOURACIL [Suspect]
     Active Substance: PROPYLTHIOURACIL
     Dosage: 200 MG THREE TIMES DAILY
     Route: 065
     Dates: start: 202501
  4. PROPYLTHIOURACIL [Suspect]
     Active Substance: PROPYLTHIOURACIL
     Dosage: 150 MG THREE  TIMES DAILY,
     Route: 065
  5. PROPYLTHIOURACIL [Suspect]
     Active Substance: PROPYLTHIOURACIL
     Route: 065
     Dates: start: 20250106, end: 20250121
  6. METRONIDAZOLE [Suspect]
     Active Substance: METRONIDAZOLE
     Indication: Infection
     Route: 042
     Dates: start: 20250121, end: 20250124
  7. MEROPENEM [Suspect]
     Active Substance: MEROPENEM
     Indication: Infection
     Route: 042
     Dates: start: 20250124, end: 20250127
  8. PIPERACILLIN SODIUM\TAZOBACTAM SODIUM [Concomitant]
     Active Substance: PIPERACILLIN SODIUM\TAZOBACTAM SODIUM
     Indication: Infection
     Route: 042
     Dates: start: 20250121, end: 20250127
  9. PROPRANOLOL [Concomitant]
     Active Substance: PROPRANOLOL HYDROCHLORIDE
     Indication: Product used for unknown indication
     Route: 065
     Dates: start: 20250106
  10. MELATONIN [Concomitant]
     Active Substance: MELATONIN
     Indication: Product used for unknown indication
     Route: 065
     Dates: start: 20250120

REACTIONS (5)
  - Pancytopenia [Recovered/Resolved]
  - Agranulocytosis [Recovered/Resolved]
  - Epstein-Barr virus infection [Recovered/Resolved]
  - Drug ineffective [Unknown]
  - Hypotension [Recovered/Resolved]
